FAERS Safety Report 5515140-3 (Version None)
Quarter: 2007Q4

REPORT INFORMATION
  Report Type: 
  Country: None (occurrence: None)
  Receive Date: 20071113
  Receipt Date: 20070116
  Transmission Date: 20080405
  Serious: No
  Sender: FDA-Public Use
  Company Number: A0635859A

PATIENT
  Sex: Male

DRUGS (13)
  1. COREG [Suspect]
     Indication: LEFT VENTRICULAR DYSFUNCTION
     Dosage: 25MG TWICE PER DAY
     Route: 048
     Dates: start: 20061205
  2. SPIRONOLACTONE [Suspect]
     Dates: end: 20070115
  3. ALTACE [Concomitant]
  4. BENICAR [Concomitant]
  5. SPIRONOLACTONE [Concomitant]
  6. GLUCOPHAGE [Concomitant]
  7. CRESTOR [Concomitant]
  8. NEURONTIN [Concomitant]
  9. ASPIRIN [Concomitant]
  10. XANAX [Concomitant]
  11. ASCORBIC ACID [Concomitant]
  12. SAW PALMETTO [Concomitant]
  13. LEVITRA [Concomitant]

REACTIONS (3)
  - BLOOD PRESSURE INCREASED [None]
  - GASTROINTESTINAL DISORDER [None]
  - RASH [None]
